FAERS Safety Report 12278113 (Version 2)
Quarter: 2016Q2

REPORT INFORMATION
  Report Type: Spontaneous
  Country: AU (occurrence: AU)
  Receive Date: 20160418
  Receipt Date: 20160530
  Transmission Date: 20160815
  Serious: Yes (Hospitalization, Disabling, Other)
  Sender: FDA-Public Use
  Company Number: AU-009507513-1604AUS011123

PATIENT
  Age: 47 Year
  Sex: Male

DRUGS (2)
  1. CELESTONE CHRONODOSE [Suspect]
     Active Substance: BETAMETHASONE ACETATE\BETAMETHASONE SODIUM PHOSPHATE
     Indication: ARTHRALGIA
     Dosage: UNK, UNKNOWN
     Route: 065
     Dates: start: 20151111
  2. CELESTONE CHRONODOSE [Suspect]
     Active Substance: BETAMETHASONE ACETATE\BETAMETHASONE SODIUM PHOSPHATE
     Dosage: UNK, UNKNOWN
     Route: 065
     Dates: start: 20160127

REACTIONS (10)
  - Hypokinesia [Not Recovered/Not Resolved]
  - Joint effusion [Unknown]
  - Gait disturbance [Unknown]
  - Laceration [Unknown]
  - Abasia [Unknown]
  - Fatigue [Not Recovered/Not Resolved]
  - Scedosporium infection [Not Recovered/Not Resolved]
  - Arthralgia [Not Recovered/Not Resolved]
  - Product contamination microbial [Unknown]
  - Scar [Unknown]

NARRATIVE: CASE EVENT DATE: 20151111
